FAERS Safety Report 15096895 (Version 2)
Quarter: 2018Q3

REPORT INFORMATION
  Report Type: Spontaneous
  Country: FR (occurrence: FR)
  Receive Date: 20180702
  Receipt Date: 20180705
  Transmission Date: 20181010
  Serious: Yes (Other)
  Sender: FDA-Public Use
  Company Number: FR-MYLANLABS-2018M1048096

PATIENT
  Sex: Male

DRUGS (3)
  1. CLOZAPINE MYLAN [Suspect]
     Active Substance: CLOZAPINE
     Dosage: UNK
     Dates: start: 2018
  2. CLOZAPINE MYLAN [Suspect]
     Active Substance: CLOZAPINE
     Dosage: 225 MG, UNK
     Dates: start: 2018
  3. CLOZAPINE MYLAN [Suspect]
     Active Substance: CLOZAPINE
     Indication: PRODUCT USED FOR UNKNOWN INDICATION
     Dosage: UNK
     Dates: start: 201802

REACTIONS (3)
  - Drug ineffective [Unknown]
  - Neutropenia [Recovering/Resolving]
  - Leukopenia [Recovering/Resolving]

NARRATIVE: CASE EVENT DATE: 2018
